FAERS Safety Report 10203912 (Version 1)
Quarter: 2014Q2

REPORT INFORMATION
  Report Type: Spontaneous
  Country: GB (occurrence: GB)
  Receive Date: 20140529
  Receipt Date: 20140529
  Transmission Date: 20141212
  Serious: Yes (Other)
  Sender: FDA-Public Use
  Company Number: PHHY2014GB064701

PATIENT
  Sex: Male

DRUGS (2)
  1. BISOPROLOL [Suspect]
     Indication: PRODUCT USED FOR UNKNOWN INDICATION
     Dosage: 2.5 MG, UNK
  2. IVABRADINE [Suspect]
     Indication: HEART RATE INCREASED
     Dosage: 5 MG, BID

REACTIONS (2)
  - Sinus arrest [Unknown]
  - Heart rate decreased [Unknown]
